FAERS Safety Report 9067196 (Version 1)
Quarter: 2013Q1

REPORT INFORMATION
  Report Type: Report from Study
  Country: US (occurrence: US)
  Receive Date: 20130131
  Receipt Date: 20130131
  Transmission Date: 20140127
  Serious: No
  Sender: FDA-Public Use
  Company Number: US-ABBOTT-12P-163-1001551-00

PATIENT
  Age: 55 Year
  Sex: Male

DRUGS (5)
  1. HUMIRA [Suspect]
     Indication: PSORIASIS
     Dates: start: 2010
  2. TRILIPIX [Concomitant]
     Indication: BLOOD CHOLESTEROL
     Dosage: 135MG DAILY
  3. TRIAMTERENE AND HYDROCHLOROTHIAZID [Concomitant]
     Indication: BLOOD PRESSURE
     Dosage: 37.5/25MG DAILY
  4. OLMESARTAN MEDOXOMIL [Concomitant]
     Indication: BLOOD PRESSURE
     Dosage: 20MG DAILY
  5. BABY ASPIRIN [Concomitant]
     Indication: PRODUCT USED FOR UNKNOWN INDICATION
     Dosage: 81MG DAILY

REACTIONS (3)
  - Dizziness [Recovering/Resolving]
  - Dehydration [Recovering/Resolving]
  - Vertigo [Recovering/Resolving]
